FAERS Safety Report 19666101 (Version 2)
Quarter: 2021Q3

REPORT INFORMATION
  Report Type: Other
  Country: HR (occurrence: HR)
  Receive Date: 20210805
  Receipt Date: 20210910
  Transmission Date: 20211014
  Serious: Yes (Other)
  Sender: FDA-Public Use
  Company Number: HR-CELLTRION INC.-2021HR010087

PATIENT

DRUGS (1)
  1. REMSIMA [Suspect]
     Active Substance: INFLIXIMAB
     Indication: CROHN^S DISEASE
     Dosage: 500 MG, EVERY 8 WEEK
     Route: 042
     Dates: start: 20191029, end: 20200922

REACTIONS (3)
  - Overdose [Unknown]
  - Crohn^s disease [Unknown]
  - Endoscopy abnormal [Unknown]

NARRATIVE: CASE EVENT DATE: 20191029
